FAERS Safety Report 18198435 (Version 1)
Quarter: 2020Q3

REPORT INFORMATION
  Report Type: Report from Study
  Country: US (occurrence: US)
  Receive Date: 20200826
  Receipt Date: 20200826
  Transmission Date: 20201103
  Serious: Yes (Other)
  Sender: FDA-Public Use
  Company Number: US-MYLANLABS-2020M1074053

PATIENT
  Age: 9 Year
  Sex: Female

DRUGS (2)
  1. LEVETIRACETAM. [Suspect]
     Active Substance: LEVETIRACETAM
     Indication: SEIZURE
     Route: 065
  2. PROPRANOLOL [Concomitant]
     Active Substance: PROPRANOLOL HYDROCHLORIDE
     Indication: AGGRESSION
     Dosage: LOW?DOSE
     Route: 065

REACTIONS (4)
  - Intentional self-injury [Unknown]
  - Irritability [Unknown]
  - Agitation [Unknown]
  - Condition aggravated [Unknown]
